FAERS Safety Report 5484224-0 (Version None)
Quarter: 2007Q4

REPORT INFORMATION
  Report Type: 
  Country: None (occurrence: None)
  Receive Date: 20071009
  Receipt Date: 20070924
  Transmission Date: 20080405
  Serious: Yes (Other)
  Sender: FDA-Public Use
  Company Number: S07-GER-05283-01

PATIENT
  Age: 85 Year
  Sex: Male
  Weight: 85 kg

DRUGS (9)
  1. ESCITALOPRAM [Suspect]
     Indication: MAJOR DEPRESSION
     Dosage: 5 MG QD PO
     Route: 048
  2. ESCITALOPRAM [Suspect]
     Indication: MAJOR DEPRESSION
     Dosage: 10 MG QD PO
     Route: 048
  3. ESCITALOPRAM [Suspect]
     Indication: MAJOR DEPRESSION
  4. PREDNISOLONE [Concomitant]
  5. CALCIMAGON-D3 [Concomitant]
  6. CARVEDILOL [Concomitant]
  7. LORZAAR PLUS [Concomitant]
  8. PRAVASTATIN SODIUM [Concomitant]
  9. ALLOPURINOL [Concomitant]

REACTIONS (1)
  - ATRIAL FIBRILLATION [None]
